FAERS Safety Report 9177324 (Version 1)
Quarter: 2013Q1

REPORT INFORMATION
  Report Type: Spontaneous
  Country: US (occurrence: None)
  Receive Date: 20130320
  Receipt Date: 20130320
  Transmission Date: 20140127
  Serious: No
  Sender: FDA-Public Use
  Company Number: None

PATIENT
  Age: 65 Year
  Sex: Male
  Weight: 94.1 kg

DRUGS (2)
  1. AMOXICILLIN/CLAVULANATE (AUGMENTIN) [Suspect]
     Route: 048
     Dates: start: 20121204, end: 20121214
  2. AZITHROMYCIN [Suspect]
     Route: 048
     Dates: start: 20121212, end: 20121217

REACTIONS (5)
  - Dyspnoea [None]
  - Musculoskeletal pain [None]
  - Groin pain [None]
  - Glossodynia [None]
  - Swollen tongue [None]
